FAERS Safety Report 5981199-2 (Version None)
Quarter: 2008Q4

REPORT INFORMATION
  Report Type: 
  Country: None (occurrence: None)
  Receive Date: 20081205
  Receipt Date: 20081120
  Transmission Date: 20090506
  Serious: Yes (Death, Hospitalization)
  Sender: FDA-Public Use
  Company Number: B0548191A

PATIENT
  Age: 54 Year
  Sex: Female

DRUGS (2)
  1. LAMIVUDINE [Suspect]
     Indication: HEPATIC CIRRHOSIS
     Dosage: 100MG PER DAY
     Dates: start: 20010901
  2. ADEFOVIR DIPIVOXIL KIT [Suspect]
     Dosage: 10MG PER DAY

REACTIONS (33)
  - ALPHA 1 FOETOPROTEIN INCREASED [None]
  - AMMONIA INCREASED [None]
  - ANAEMIA [None]
  - ASCITES [None]
  - ASTERIXIS [None]
  - ATELECTASIS [None]
  - C-REACTIVE PROTEIN INCREASED [None]
  - COMA [None]
  - COMA HEPATIC [None]
  - DISORIENTATION [None]
  - ENCEPHALOPATHY [None]
  - FAECAL INCONTINENCE [None]
  - FATIGUE [None]
  - HEPATIC FAILURE [None]
  - HEPATIC FUNCTION ABNORMAL [None]
  - HEPATIC NECROSIS [None]
  - HEPATITIS B [None]
  - HEPATITIS B DNA INCREASED [None]
  - INFECTION [None]
  - JAUNDICE [None]
  - NAUSEA [None]
  - OEDEMA PERIPHERAL [None]
  - PLATELET COUNT DECREASED [None]
  - PLEURAL EFFUSION [None]
  - PNEUMONIA BACTERIAL [None]
  - PNEUMONIA PNEUMOCOCCAL [None]
  - PYREXIA [None]
  - RESPIRATORY DISORDER [None]
  - RESPIRATORY DISTRESS [None]
  - RESTLESSNESS [None]
  - SPLENOMEGALY [None]
  - VARICES OESOPHAGEAL [None]
  - VOMITING [None]
